FAERS Safety Report 18067380 (Version 2)
Quarter: 2020Q3

REPORT INFORMATION
  Report Type: Spontaneous
  Country: DE (occurrence: DE)
  Receive Date: 20200724
  Receipt Date: 20200824
  Transmission Date: 20201103
  Serious: Yes (Hospitalization, Other)
  Sender: FDA-Public Use
  Company Number: DE-ALLERGAN-2027437US

PATIENT
  Sex: Female

DRUGS (1)
  1. LEVONORGESTREL ? BP [Suspect]
     Active Substance: LEVONORGESTREL
     Indication: CONTRACEPTION
     Dosage: 52 MG, AT AN INITIAL RELEASE RATE OF 20 MICROGRAM PER 24 HOURS
     Route: 015
     Dates: start: 201806

REACTIONS (3)
  - Ovarian cyst ruptured [Unknown]
  - Bacterial vaginosis [Unknown]
  - Abdominal pain lower [Unknown]

NARRATIVE: CASE EVENT DATE: 202001
